FAERS Safety Report 7049503-4 (Version None)
Quarter: 2010Q4

REPORT INFORMATION
  Report Type: 
  Country: None (occurrence: None)
  Receive Date: 20101012
  Receipt Date: 20100924
  Transmission Date: 20110411
  Serious: Yes (Death)
  Sender: FDA-Public Use
  Company Number: AE 2010-292

PATIENT
  Age: 42 Year
  Sex: Male

DRUGS (1)
  1. FAZACLO ODT [Suspect]
     Indication: BIPOLAR I DISORDER
     Dosage: 600 MG QD PO
     Route: 048
     Dates: start: 20081008, end: 20100701

REACTIONS (3)
  - AVULSION FRACTURE [None]
  - OSTEOARTHRITIS [None]
  - PULMONARY EMBOLISM [None]
